FAERS Safety Report 16486838 (Version 1)
Quarter: 2019Q2

REPORT INFORMATION
  Report Type: Spontaneous
  Country: US (occurrence: US)
  Receive Date: 20190517
  Receipt Date: 20190517
  Transmission Date: 20190711
  Serious: No
  Sender: FDA-Public Use
  Company Number: None

PATIENT
  Sex: Female

DRUGS (1)
  1. HYDROXYPROGEST ++CAPR SDV 150MG/ML [Suspect]
     Active Substance: HYDROXYPROGESTERONE CAPROATE
     Dosage: ?          OTHER FREQUENCY:ONCE A WEEK;?
     Route: 030
     Dates: start: 20190408, end: 20190501

REACTIONS (1)
  - Hypersensitivity [None]
